FAERS Safety Report 6183900-4 (Version None)
Quarter: 2009Q2

REPORT INFORMATION
  Report Type: 
  Country: None (occurrence: None)
  Receive Date: 20090508
  Receipt Date: 20090505
  Transmission Date: 20091009
  Serious: Yes (Hospitalization)
  Sender: FDA-Public Use
  Company Number: FR-WYE-G03625809

PATIENT
  Sex: Female

DRUGS (6)
  1. EFFEXOR [Suspect]
     Dosage: UNKNOWN
     Route: 048
     Dates: end: 20060101
  2. EFFEXOR [Suspect]
     Dosage: UNKNOWN
     Route: 048
     Dates: start: 20060101, end: 20070101
  3. EFFEXOR [Suspect]
     Dosage: UNKNOWN
     Route: 048
     Dates: end: 20090401
  4. TENORMIN [Concomitant]
     Dosage: UNKNOWN
     Dates: start: 20060101
  5. COKENZEN [Concomitant]
     Dosage: UNKNOWN
     Route: 048
     Dates: start: 20060101
  6. KARDEGIC [Concomitant]
     Dosage: UNKNOWN
     Dates: start: 20060101

REACTIONS (6)
  - CONFUSIONAL STATE [None]
  - CONVULSION [None]
  - FALL [None]
  - HYPONATRAEMIA [None]
  - PARKINSONISM [None]
  - SUBDURAL HAEMATOMA [None]
